FAERS Safety Report 21314722 (Version 1)
Quarter: 2022Q3

REPORT INFORMATION
  Report Type: Spontaneous
  Country: US (occurrence: None)
  Receive Date: 20220909
  Receipt Date: 20220909
  Transmission Date: 20221027
  Serious: No
  Sender: FDA-Public Use
  Company Number: US-ARIS GLOBAL-202110-1957

PATIENT
  Sex: Female

DRUGS (22)
  1. OXERVATE [Suspect]
     Active Substance: CENEGERMIN-BKBJ
     Indication: Neurotrophic keratopathy
     Route: 047
     Dates: start: 20211005
  2. ACETAMINOPHEN\HYDROCODONE [Concomitant]
     Active Substance: ACETAMINOPHEN\HYDROCODONE
  3. REFRESH TEARS [Concomitant]
     Active Substance: CARBOXYMETHYLCELLULOSE SODIUM
  4. REFRESH P.M. [Concomitant]
     Active Substance: MINERAL OIL\PETROLATUM
     Dosage: 42.5-57.3%
  5. TYLENOL [Concomitant]
     Active Substance: ACETAMINOPHEN
  6. BENADRYL ALLERGY [Concomitant]
     Active Substance: DIPHENHYDRAMINE HYDROCHLORIDE
  7. NITROSTAT [Concomitant]
     Active Substance: NITROGLYCERIN
  8. IRON 100 - VIT C [Concomitant]
  9. LEVEMIR [Concomitant]
     Active Substance: INSULIN DETEMIR
     Dosage: VIAL
  10. VITAMIN D2 [Concomitant]
     Active Substance: ERGOCALCIFEROL
  11. POTASSIUM [Concomitant]
     Active Substance: POTASSIUM
     Dosage: 595(99) MG
  12. PRAVASTATIN SODIUM [Concomitant]
     Active Substance: PRAVASTATIN SODIUM
  13. LASIX [Concomitant]
     Active Substance: FUROSEMIDE
  14. ATENOLOL [Concomitant]
     Active Substance: ATENOLOL
  15. NEURONTIN [Concomitant]
     Active Substance: GABAPENTIN
  16. AMARYL [Concomitant]
     Active Substance: GLIMEPIRIDE
  17. ASPIRIN [Concomitant]
     Active Substance: ASPIRIN
  18. ISOSORBIDE MONONITRATE [Concomitant]
     Active Substance: ISOSORBIDE MONONITRATE
  19. ALLEGRA ALLERGY [Concomitant]
     Active Substance: FEXOFENADINE HYDROCHLORIDE
  20. PROTONIX [Concomitant]
     Active Substance: PANTOPRAZOLE SODIUM
  21. SYNTHROID [Concomitant]
     Active Substance: LEVOTHYROXINE SODIUM
  22. INSPRA [Concomitant]
     Active Substance: EPLERENONE

REACTIONS (2)
  - Drug ineffective [Unknown]
  - Eye pain [Unknown]
